FAERS Safety Report 4357676-7 (Version None)
Quarter: 2004Q2

REPORT INFORMATION
  Report Type: 
  Country: None (occurrence: None)
  Receive Date: 20040513
  Receipt Date: 20030922
  Transmission Date: 20050107
  Serious: Yes (Hospitalization, Disabling)
  Sender: FDA-Public Use
  Company Number: FR-BRISTOL-MYERS SQUIBB COMPANY-12391496

PATIENT
  Age: 49 Year
  Sex: Male
  Weight: 79 kg

DRUGS (3)
  1. ELISOR TABS 20 MG [Suspect]
     Indication: HYPERCHOLESTEROLAEMIA
     Route: 048
     Dates: start: 19930101, end: 20030830
  2. TAREG [Concomitant]
     Dates: start: 20030601
  3. KESTIN [Concomitant]
     Dates: start: 20030401

REACTIONS (8)
  - BLOOD CREATINE PHOSPHOKINASE INCREASED [None]
  - BLOOD CREATINE PHOSPHOKINASE MB INCREASED [None]
  - INGUINAL HERNIA [None]
  - MUSCLE ATROPHY [None]
  - MYALGIA [None]
  - PEYRONIE'S DISEASE [None]
  - TENDON DISORDER [None]
  - TENDON RUPTURE [None]
